FAERS Safety Report 8313191-7 (Version None)
Quarter: 2012Q2

REPORT INFORMATION
  Report Type: 
  Country: None (occurrence: None)
  Receive Date: 20120426
  Receipt Date: 20120417
  Transmission Date: 20120825
  Serious: Yes (Other)
  Sender: FDA-Public Use
  Company Number: US-CELGENEUS-163-21880-12042137

PATIENT
  Age: 69 Year
  Sex: Male
  Weight: 78 kg

DRUGS (2)
  1. REVLIMID [Suspect]
     Indication: MULTIPLE MYELOMA
     Dosage: 15 MILLIGRAM
     Route: 048
     Dates: start: 20110701, end: 20120201
  2. PREDNISONE TAB [Concomitant]
     Indication: MULTIPLE MYELOMA
     Route: 065
     Dates: start: 20110701, end: 20120201

REACTIONS (3)
  - CARDIOVASCULAR DISORDER [None]
  - GASTROINTESTINAL DISORDER [None]
  - MULTIPLE MYELOMA [None]
